FAERS Safety Report 16138278 (Version 2)
Quarter: 2020Q1

REPORT INFORMATION
  Report Type: Spontaneous
  Country: HR (occurrence: HR)
  Receive Date: 20190330
  Receipt Date: 20200125
  Transmission Date: 20200409
  Serious: Yes (Other)
  Sender: FDA-Public Use
  Company Number: HR-ACCORD-115735

PATIENT
  Age: 53 Year
  Sex: Female

DRUGS (10)
  1. FOLACIN (CALCIUM PHOSPHATE\FOLIC ACID) [Suspect]
     Active Substance: CALCIUM PHOSPHATE\FOLIC ACID
     Indication: PSORIASIS
     Dosage: 1 DF, QW
     Route: 065
  2. DECORTIN [Concomitant]
     Active Substance: PREDNISONE
     Indication: PRODUCT USED FOR UNKNOWN INDICATION
     Dosage: UNK
     Route: 065
  3. INFLIXIMAB [Suspect]
     Active Substance: INFLIXIMAB
     Indication: PSORIATIC ARTHROPATHY
     Dosage: 5 MG/KG, UNK
     Route: 042
  4. FOLACIN (CALCIUM PHOSPHATE\FOLIC ACID) [Suspect]
     Active Substance: CALCIUM PHOSPHATE\FOLIC ACID
     Indication: PSORIATIC ARTHROPATHY
  5. EBETREXAT [Suspect]
     Active Substance: METHOTREXATE SODIUM
     Indication: PSORIATIC ARTHROPATHY
     Dosage: 10 MG, QW, FROM JUN-2017 TO 06-JUN-2018
     Route: 058
  6. EBETREXAT [Suspect]
     Active Substance: METHOTREXATE SODIUM
     Indication: PRODUCT USED FOR UNKNOWN INDICATION
     Dosage: 10 MG, UNK
     Route: 058
  7. METHOTREXATE. [Suspect]
     Active Substance: METHOTREXATE
     Indication: PSORIASIS
     Dosage: 7.5 MG, QW,
     Route: 048
  8. EBETREXAT [Suspect]
     Active Substance: METHOTREXATE SODIUM
     Indication: PSORIASIS
     Dosage: 20 MG, QW,
     Route: 058
  9. COLECALCIFEROL [Concomitant]
     Active Substance: CHOLECALCIFEROL
     Indication: PRODUCT USED FOR UNKNOWN INDICATION
     Dosage: UNK
     Route: 065
  10. METHOTREXATE. [Suspect]
     Active Substance: METHOTREXATE
     Indication: PSORIATIC ARTHROPATHY
     Dosage: 20 MG, QW
     Route: 048

REACTIONS (6)
  - Nausea [Unknown]
  - Alanine aminotransferase abnormal [Unknown]
  - Feeling abnormal [Unknown]
  - Aspartate aminotransferase abnormal [Unknown]
  - Drug ineffective [Unknown]
  - Psoriatic arthropathy [Recovering/Resolving]

NARRATIVE: CASE EVENT DATE: 201704
